FAERS Safety Report 4897427-0 (Version None)
Quarter: 2006Q1

REPORT INFORMATION
  Report Type: 
  Country: None (occurrence: None)
  Receive Date: 20060130
  Receipt Date: 20060130
  Transmission Date: 20060701
  Serious: Yes (Life-Threatening)
  Sender: FDA-Public Use
  Company Number: None

PATIENT
  Sex: Female

DRUGS (1)
  1. XOLAIR [Suspect]
     Dosage: 300MG   Q 4 WEEKS  SQ   (ONCE)
     Route: 058
     Dates: start: 20050909, end: 20050909

REACTIONS (2)
  - ABDOMINAL PAIN [None]
  - INFECTION [None]
